FAERS Safety Report 14667212 (Version 1)
Quarter: 2018Q1

REPORT INFORMATION
  Report Type: Spontaneous
  Country: US (occurrence: US)
  Receive Date: 20180322
  Receipt Date: 20180322
  Transmission Date: 20180509
  Serious: No
  Sender: FDA-Public Use
  Company Number: US-ASTRAZENECA-2002UW11244

PATIENT
  Age: 72 Year
  Sex: Female
  Weight: 74.8 kg

DRUGS (1)
  1. ESOMEPRAZOLE [Suspect]
     Active Substance: ESOMEPRAZOLE
     Route: 048

REACTIONS (3)
  - Rash [Unknown]
  - Adverse event [Unknown]
  - Abdominal pain upper [Unknown]
